FAERS Safety Report 5890407-8 (Version None)
Quarter: 2008Q3

REPORT INFORMATION
  Report Type: 
  Country: None (occurrence: None)
  Receive Date: 20080921
  Receipt Date: 20080910
  Transmission Date: 20090109
  Serious: Yes (Death, Hospitalization)
  Sender: FDA-Public Use
  Company Number: FR-JNJFOC-20080900372

PATIENT
  Age: 76 Year
  Sex: Female

DRUGS (9)
  1. REMICADE [Suspect]
     Dosage: 3RD INFUSION
     Route: 042
  2. REMICADE [Suspect]
     Route: 042
  3. REMICADE [Suspect]
     Indication: INFLAMMATORY PAIN
     Dosage: 1ST INFUSION
     Route: 042
  4. ARAVA [Suspect]
     Indication: INFLAMMATORY PAIN
     Route: 048
  5. CORTANCYL [Concomitant]
  6. KERLONE [Concomitant]
  7. MOPRAL [Concomitant]
  8. LEVOTHYROX [Concomitant]
  9. ACETAMINOPHEN [Concomitant]

REACTIONS (5)
  - ACUTE GENERALISED EXANTHEMATOUS PUSTULOSIS [None]
  - EOSINOPHILIC PNEUMONIA [None]
  - HYPERTHERMIA [None]
  - INFUSION RELATED REACTION [None]
  - PULMONARY ARTERIAL HYPERTENSION [None]
